FAERS Safety Report 6889631-7 (Version None)
Quarter: 2010Q3

REPORT INFORMATION
  Report Type: 
  Country: None (occurrence: None)
  Receive Date: 20100730
  Receipt Date: 20080404
  Transmission Date: 20110219
  Serious: No
  Sender: FDA-Public Use
  Company Number: US-PFIZER INC-2008030348

PATIENT
  Sex: Female

DRUGS (1)
  1. LIPITOR [Suspect]

REACTIONS (6)
  - ARTHRALGIA [None]
  - DRUG DOSE OMISSION [None]
  - MYALGIA [None]
  - PAIN IN EXTREMITY [None]
  - RENAL DISORDER [None]
  - WEIGHT DECREASED [None]
